FAERS Safety Report 8846841 (Version 1)
Quarter: 2012Q4

REPORT INFORMATION
  Report Type: 
  Country: US (occurrence: US)
  Receive Date: 20121018
  Receipt Date: 20121018
  Transmission Date: 20130627
  Serious: No
  Sender: FDA-Public Use
  Company Number: US-PFIZER INC-2012257211

PATIENT
  Sex: Female

DRUGS (2)
  1. EFFEXOR XR [Suspect]
     Dosage: UNK, 1x/day
     Route: 048
  2. ATENOLOL [Concomitant]
     Dosage: UNK

REACTIONS (8)
  - Hypertension [Unknown]
  - Nervousness [Unknown]
  - Withdrawal syndrome [Unknown]
  - Dyspepsia [Unknown]
  - Abdominal distension [Not Recovered/Not Resolved]
  - Vomiting [Unknown]
  - Diarrhoea [Unknown]
  - Haemorrhoids [Unknown]
